FAERS Safety Report 21128618 (Version 1)
Quarter: 2022Q3

REPORT INFORMATION
  Report Type: Spontaneous
  Country: US (occurrence: None)
  Receive Date: 20220725
  Receipt Date: 20220725
  Transmission Date: 20221026
  Serious: Yes (Other)
  Sender: FDA-Public Use
  Company Number: None

PATIENT
  Age: 49 Year
  Sex: Male
  Weight: 76.7 kg

DRUGS (1)
  1. TEZSPIRE [Suspect]
     Active Substance: TEZEPELUMAB-EKKO
     Indication: Asthma
     Dosage: OTHER FREQUENCY : 28 DAYS;?
     Route: 058

REACTIONS (6)
  - Urticaria [None]
  - Pruritus [None]
  - Rhinorrhoea [None]
  - Nasal congestion [None]
  - Anosmia [None]
  - Post procedural complication [None]

NARRATIVE: CASE EVENT DATE: 20220630
